FAERS Safety Report 25543008 (Version 1)
Quarter: 2025Q3

REPORT INFORMATION
  Report Type: Spontaneous
  Country: US (occurrence: US)
  Receive Date: 20250711
  Receipt Date: 20250711
  Transmission Date: 20251020
  Serious: Yes (Hospitalization, Other)
  Sender: TEVA
  Company Number: US-TEVA-VS-3348848

PATIENT
  Age: 86 Year
  Sex: Male
  Weight: 83.9 kg

DRUGS (8)
  1. MODAFINIL [Suspect]
     Active Substance: MODAFINIL
     Indication: Parkinson^s disease
     Route: 048
  2. MODAFINIL [Suspect]
     Active Substance: MODAFINIL
     Indication: Parkinson^s disease
     Route: 048
     Dates: start: 20250401
  3. RYTARY [Concomitant]
     Active Substance: CARBIDOPA\LEVODOPA
     Indication: Product used for unknown indication
     Route: 048
  4. ENTACAPONE [Concomitant]
     Active Substance: ENTACAPONE
     Indication: Product used for unknown indication
     Route: 048
  5. LINACLOTIDE [Concomitant]
     Active Substance: LINACLOTIDE
     Indication: Product used for unknown indication
     Dosage: EVERY MORNING
     Route: 048
  6. PREGABALIN [Concomitant]
     Active Substance: PREGABALIN
     Indication: Product used for unknown indication
     Route: 048
  7. PANTOPRAZOLE [Concomitant]
     Active Substance: PANTOPRAZOLE
     Indication: Product used for unknown indication
     Route: 048
  8. RANOLAZINE [Concomitant]
     Active Substance: RANOLAZINE
     Indication: Product used for unknown indication
     Route: 048

REACTIONS (6)
  - Surgery [Unknown]
  - Cardiac disorder [Unknown]
  - Off label use [Unknown]
  - Cardiac pacemaker insertion [Unknown]
  - Dysphagia [Unknown]
  - Bedridden [Unknown]
